FAERS Safety Report 12386787 (Version 3)
Quarter: 2016Q3

REPORT INFORMATION
  Report Type: Report from Study
  Country: CA (occurrence: CA)
  Receive Date: 20160519
  Receipt Date: 20160801
  Transmission Date: 20161109
  Serious: Yes (Death, Hospitalization)
  Sender: FDA-Public Use
  Company Number: CA-ABBVIE-16K-028-1631038-00

PATIENT
  Age: 58 Year
  Sex: Male
  Weight: 56.75 kg

DRUGS (3)
  1. PENTASA [Concomitant]
     Active Substance: MESALAMINE
     Indication: CROHN^S DISEASE
     Route: 048
     Dates: start: 201407
  2. HUMIRA [Suspect]
     Active Substance: ADALIMUMAB
     Indication: CROHN^S DISEASE
     Route: 058
     Dates: start: 20160401
  3. IMURAN [Concomitant]
     Active Substance: AZATHIOPRINE
     Indication: CROHN^S DISEASE
     Route: 048
     Dates: start: 20160309

REACTIONS (8)
  - Septic shock [Fatal]
  - Intestinal obstruction [Fatal]
  - Crohn^s disease [Fatal]
  - Staphylococcal bacteraemia [Fatal]
  - Bronchopulmonary aspergillosis [Fatal]
  - Acute respiratory distress syndrome [Fatal]
  - Respiratory moniliasis [Fatal]
  - Pulmonary embolism [Fatal]

NARRATIVE: CASE EVENT DATE: 2016
